FAERS Safety Report 7546400-2 (Version None)
Quarter: 2011Q2

REPORT INFORMATION
  Report Type: 
  Country: None (occurrence: None)
  Receive Date: 20110607
  Receipt Date: 20110523
  Transmission Date: 20111010
  Serious: Yes (Other)
  Sender: FDA-Public Use
  Company Number: JP-1186471

PATIENT
  Age: 48 Year
  Sex: Male

DRUGS (1)
  1. TRAVATAN Z [Suspect]
     Indication: GLAUCOMA
     Dosage: 1 GTT QD OPHTHALMIC
     Route: 047
     Dates: start: 20080822, end: 20100517

REACTIONS (4)
  - TREATMENT NONCOMPLIANCE [None]
  - RASH [None]
  - SYSTEMIC LUPUS ERYTHEMATOSUS [None]
  - ERYTHEMA MULTIFORME [None]
